FAERS Safety Report 5726336-X (Version None)
Quarter: 2008Q2

REPORT INFORMATION
  Report Type: 
  Country: None (occurrence: None)
  Receive Date: 20080502
  Receipt Date: 20080502
  Transmission Date: 20081010
  Serious: Yes (Other)
  Sender: FDA-Public Use
  Company Number: A0726060A

PATIENT
  Age: 42 Year
  Sex: Female

DRUGS (4)
  1. ALLI [Suspect]
  2. VITAMIN B-12 [Concomitant]
  3. VITAMIN [Concomitant]
  4. DOXYCYCLINE [Concomitant]

REACTIONS (5)
  - DIZZINESS [None]
  - MALAISE [None]
  - PALLOR [None]
  - SYNCOPE [None]
  - VISUAL DISTURBANCE [None]
